FAERS Safety Report 6872226-9 (Version None)
Quarter: 2010Q3

REPORT INFORMATION
  Report Type: 
  Country: None (occurrence: None)
  Receive Date: 20100723
  Receipt Date: 20100715
  Transmission Date: 20110219
  Serious: Yes (Other)
  Sender: FDA-Public Use
  Company Number: FR-SANOFI-AVENTIS-2010SA032051

PATIENT
  Age: 51 Year
  Sex: Female

DRUGS (1)
  1. PLAVIX [Suspect]
     Indication: PRODUCT USED FOR UNKNOWN INDICATION
     Route: 048
     Dates: start: 20100430

REACTIONS (4)
  - DERMATITIS BULLOUS [None]
  - DISEASE RECURRENCE [None]
  - PHOTOSENSITIVITY REACTION [None]
  - TOXIC EPIDERMAL NECROLYSIS [None]
